FAERS Safety Report 5891486-4 (Version None)
Quarter: 2008Q3

REPORT INFORMATION
  Report Type: 
  Country: None (occurrence: None)
  Receive Date: 20080922
  Receipt Date: 20080915
  Transmission Date: 20090109
  Serious: Yes (Life-Threatening)
  Sender: FDA-Public Use
  Company Number: GB-TEVA-177515ISR

PATIENT
  Age: 62 Year
  Sex: Female

DRUGS (1)
  1. DICLOFENAC [Suspect]
     Indication: PAIN
     Route: 048
     Dates: start: 20080723, end: 20080723

REACTIONS (2)
  - ATRIAL FIBRILLATION [None]
  - BRONCHOSPASM [None]
